FAERS Safety Report 7805670-3 (Version None)
Quarter: 2011Q4

REPORT INFORMATION
  Report Type: 
  Country: None (occurrence: None)
  Receive Date: 20111011
  Receipt Date: 20110930
  Transmission Date: 20120403
  Serious: Yes (Other)
  Sender: FDA-Public Use
  Company Number: US-BIOGENIDEC-2011BI010183

PATIENT
  Age: 35 Year
  Sex: Female

DRUGS (2)
  1. PRENATAL VITAMINS [Concomitant]
  2. TYSABRI [Suspect]
     Indication: MULTIPLE SCLEROSIS
     Route: 042
     Dates: start: 20080709, end: 20101226

REACTIONS (2)
  - PREGNANCY [None]
  - CAESAREAN SECTION [None]
